FAERS Safety Report 8101134-0 (Version None)
Quarter: 2012Q1

REPORT INFORMATION
  Report Type: 
  Country: None (occurrence: None)
  Receive Date: 20120129
  Receipt Date: 20111013
  Transmission Date: 20120608
  Serious: No
  Sender: FDA-Public Use
  Company Number: US-ABBOTT-11P-163-0863701-00

PATIENT
  Sex: Female
  Weight: 81.72 kg

DRUGS (3)
  1. PREMARIN [Concomitant]
     Indication: PRODUCT USED FOR UNKNOWN INDICATION
  2. HUMIRA [Suspect]
     Indication: RHEUMATOID ARTHRITIS
     Route: 058
     Dates: start: 20100401, end: 20110901
  3. HUMIRA [Suspect]
     Route: 058
     Dates: start: 20110901

REACTIONS (3)
  - ASTHENIA [None]
  - PAIN [None]
  - RHEUMATOID ARTHRITIS [None]
